FAERS Safety Report 23957587 (Version 1)
Quarter: 2024Q2

REPORT INFORMATION
  Report Type: Spontaneous
  Country: US (occurrence: US)
  Receive Date: 20240610
  Receipt Date: 20240610
  Transmission Date: 20240715
  Serious: Yes (Hospitalization, Other)
  Sender: FDA-Public Use
  Company Number: US-BRISTOL-MYERS SQUIBB COMPANY-2024-086064

PATIENT
  Age: 62 Year
  Sex: Female
  Weight: 58.9 kg

DRUGS (1)
  1. SOTYKTU [Suspect]
     Active Substance: DEUCRAVACITINIB
     Indication: Psoriasis
     Dosage: FREQ: DAILY
     Route: 048
     Dates: start: 202311

REACTIONS (4)
  - Hand fracture [Unknown]
  - Hypertension [Unknown]
  - Heart rate decreased [Unknown]
  - Fall [Unknown]

NARRATIVE: CASE EVENT DATE: 20231101
